FAERS Safety Report 10415260 (Version 1)
Quarter: 2014Q2

REPORT INFORMATION
  Report Type: Spontaneous
  Country: US (occurrence: None)
  Receive Date: 20140604
  Receipt Date: 20140604
  Transmission Date: 20141212
  Serious: No
  Sender: FDA-Public Use
  Company Number: 163-POMAL-14022381

PATIENT
  Age: 87 Year
  Sex: Female
  Weight: 57.15 kg

DRUGS (5)
  1. POMALYST (POMALIDOMIDE) (CAPSULES) [Suspect]
     Indication: PLASMA CELL MYELOMA
     Route: 048
     Dates: start: 201303
  2. CRESTOR (ROTUVASTATIN) [Concomitant]
  3. DEXAMETHASONE [Concomitant]
  4. ASPIRIN (ACETYLSALICYLIC ACID) [Concomitant]
  5. IBUPROFEN [Concomitant]

REACTIONS (4)
  - Skin haemorrhage [None]
  - Skin atrophy [None]
  - Rash macular [None]
  - Neuropathy peripheral [None]
